FAERS Safety Report 9365300 (Version 1)
Quarter: 2013Q2

REPORT INFORMATION
  Report Type: Spontaneous
  Country: FR (occurrence: FR)
  Receive Date: 20130625
  Receipt Date: 20130625
  Transmission Date: 20140414
  Serious: Yes (Hospitalization)
  Sender: FDA-Public Use
  Company Number: FR-AMGEN-FRASP2013044243

PATIENT
  Age: 58 Year
  Sex: Male

DRUGS (6)
  1. ENBREL [Suspect]
     Indication: RHEUMATOID ARTHRITIS
     Dosage: 50 MG, WEEKLY
     Route: 065
     Dates: start: 2002, end: 201107
  2. NOVATREX                           /00113801/ [Concomitant]
     Dosage: 15 MG, WEEKLY
  3. CORTANCYL [Concomitant]
     Dosage: 6 MG DAILY
  4. LAMALINE                           /00764901/ [Concomitant]
     Dosage: UNK UNK, UNK
  5. FOSAMAX [Concomitant]
     Dosage: 110 MG DAILY
  6. SPECIAFOLDINE [Concomitant]
     Dosage: UNK UNK, UNK

REACTIONS (5)
  - General physical health deterioration [Recovered/Resolved]
  - Inflammation [Recovered/Resolved]
  - Pleural effusion [Recovered/Resolved]
  - Pleural fibrosis [Recovering/Resolving]
  - Lymphadenopathy mediastinal [Recovering/Resolving]
